FAERS Safety Report 10889230 (Version 2)
Quarter: 2019Q4

REPORT INFORMATION
  Report Type: Report from Study
  Country: FR (occurrence: FR)
  Receive Date: 20150305
  Receipt Date: 20191010
  Transmission Date: 20200122
  Serious: Yes (Hospitalization, Other)
  Sender: FDA-Public Use
  Company Number: FR-MYLANLABS-2015M1006469

PATIENT
  Sex: Male
  Weight: 73 kg

DRUGS (20)
  1. METHOTREXATE. [Suspect]
     Active Substance: METHOTREXATE
     Dosage: 25 MILLIGRAM, QW
     Route: 048
     Dates: start: 201902
  2. ACITRETIN. [Suspect]
     Active Substance: ACITRETIN
     Indication: PRODUCT USED FOR UNKNOWN INDICATION
     Dosage: 10 MILLIGRAM, QD
     Route: 048
     Dates: start: 20131121, end: 20140512
  3. DAIVOBET [Concomitant]
     Active Substance: BETAMETHASONE DIPROPIONATE\CALCIPOTRIENE
     Dosage: UNK,DAILY
     Dates: start: 20130506, end: 20151116
  4. DERMOVAL                           /00008501/ [Concomitant]
     Active Substance: CLOBETASOL PROPIONATE
     Dosage: 50 MILLIGRAM, BID
     Dates: start: 20130506, end: 20140126
  5. SORIATANE [Concomitant]
     Active Substance: ACITRETIN
     Dosage: 10 MILLIGRAM, QD
     Route: 048
     Dates: start: 20131126, end: 20140512
  6. METHOTREXATE. [Suspect]
     Active Substance: METHOTREXATE
     Dosage: 25 MILLIGRAM, QW
     Route: 048
     Dates: start: 20120822, end: 20131022
  7. ACITRETIN. [Suspect]
     Active Substance: ACITRETIN
     Dosage: 25 MILLIGRAM, QD
     Route: 048
     Dates: start: 201902
  8. SEBIPROX [Concomitant]
     Active Substance: CICLOPIROX OLAMINE
     Dosage: UNK
     Dates: start: 20130902
  9. DAIVONEX [Concomitant]
     Active Substance: CALCIPOTRIENE
     Dosage: 5 MILLIGRAM, QD
     Dates: start: 20140707, end: 20141208
  10. DIPROLENE [Concomitant]
     Active Substance: BETAMETHASONE DIPROPIONATE
     Dosage: 50 MILLIGRAM, QD
     Dates: start: 20140512, end: 20140707
  11. ACITRETIN. [Suspect]
     Active Substance: ACITRETIN
     Dosage: 25 MILLIGRAM, QD
     Route: 048
     Dates: start: 20140512, end: 20190103
  12. SPECIAFOLDINE [Concomitant]
     Active Substance: FOLIC ACID
     Dosage: 40 MILLIGRAM, QW
     Route: 048
     Dates: start: 20120619
  13. PHYLARM [Concomitant]
     Dosage: UNK, BID
     Dates: start: 20141208, end: 20150608
  14. METHOTREXATE. [Suspect]
     Active Substance: METHOTREXATE
     Dosage: 10 MG, UNK
     Dates: start: 201312
  15. METHOTREXATE. [Suspect]
     Active Substance: METHOTREXATE
     Indication: PSORIASIS
     Dosage: 25 MG, QW
     Route: 048
     Dates: start: 20120611, end: 20131022
  16. ACITRETIN. [Suspect]
     Active Substance: ACITRETIN
     Dosage: 10 MILLIGRAM, QD
     Route: 048
     Dates: start: 20190103, end: 201902
  17. SORIATANE [Concomitant]
     Active Substance: ACITRETIN
     Dosage: 25 MILLIGRAM, QD
     Route: 048
     Dates: start: 20140707
  18. DIPROSONE                          /00008502/ [Concomitant]
     Active Substance: BETAMETHASONE SODIUM PHOSPHATE
     Dosage: 50 MILLIGRAM, QD
     Dates: start: 20140707, end: 20141208
  19. METHOTREXATE. [Suspect]
     Active Substance: METHOTREXATE
     Dosage: 15 MILLIGRAM, QW
     Route: 048
     Dates: start: 20120619, end: 20120822
  20. SORIATANE [Concomitant]
     Active Substance: ACITRETIN
     Dosage: 20 MILLIGRAM, QD
     Route: 048
     Dates: start: 20140512, end: 20140707

REACTIONS (4)
  - Basal cell carcinoma [Recovered/Resolved]
  - Neoplasm recurrence [Recovering/Resolving]
  - Psoriasis [Recovering/Resolving]
  - Infarction [Recovered/Resolved with Sequelae]

NARRATIVE: CASE EVENT DATE: 20131022
